FAERS Safety Report 19736841 (Version 3)
Quarter: 2022Q2

REPORT INFORMATION
  Report Type: Report from Study
  Country: CA (occurrence: CA)
  Receive Date: 20210823
  Receipt Date: 20220407
  Transmission Date: 20220720
  Serious: Yes (Hospitalization, Other)
  Sender: FDA-Public Use
  Company Number: CA-BAUSCH-BL-2021-027595

PATIENT
  Age: 68 Year
  Sex: Male

DRUGS (5)
  1. DEXAMETHASONE [Suspect]
     Active Substance: DEXAMETHASONE
     Indication: Plasma cell myeloma
     Dosage: 3 IN 1 WEEKS
     Route: 065
  2. DEXAMETHASONE [Suspect]
     Active Substance: DEXAMETHASONE
     Dosage: 2 IN 1 WEEKS
     Route: 065
  3. CYCLOPHOSPHAMIDE [Suspect]
     Active Substance: CYCLOPHOSPHAMIDE
     Indication: Plasma cell myeloma
     Route: 065
  4. IXAZOMIB [Suspect]
     Active Substance: IXAZOMIB
     Indication: Plasma cell myeloma
     Route: 048
  5. ASPIRIN [Suspect]
     Active Substance: ASPIRIN
     Indication: Product used for unknown indication
     Route: 065

REACTIONS (19)
  - Neuropathy peripheral [Recovered/Resolved]
  - Vision blurred [Recovered/Resolved]
  - Cytopenia [Recovered/Resolved]
  - Fatigue [Recovered/Resolved]
  - Muscular weakness [Recovered/Resolved]
  - Rash [Recovered/Resolved]
  - Sepsis [Recovered/Resolved]
  - Skin ulcer [Recovered/Resolved]
  - Chest pain [Recovered/Resolved]
  - Contusion [Recovered/Resolved]
  - Depressed mood [Recovered/Resolved]
  - Hypoaesthesia [Recovered/Resolved]
  - Oedema peripheral [Recovered/Resolved]
  - Pain [Recovered/Resolved]
  - Skin fragility [Recovered/Resolved]
  - Skin laceration [Recovered/Resolved]
  - Cellulitis [Recovered/Resolved]
  - Bacterial infection [Recovered/Resolved]
  - Off label use [Recovered/Resolved]
